FAERS Safety Report 8607705-7 (Version None)
Quarter: 2012Q3

REPORT INFORMATION
  Report Type: 
  Country: None (occurrence: None)
  Receive Date: 20120821
  Receipt Date: 20120814
  Transmission Date: 20120928
  Serious: Yes (Other)
  Sender: FDA-Public Use
  Company Number: PL-PFIZER INC-2012200323

PATIENT

DRUGS (1)
  1. VFEND [Suspect]
     Dosage: UNK

REACTIONS (2)
  - ALTERED STATE OF CONSCIOUSNESS [None]
  - DIZZINESS [None]
